FAERS Safety Report 10802360 (Version 2)
Quarter: 2015Q1

REPORT INFORMATION
  Report Type: Spontaneous
  Country: KZ (occurrence: KZ)
  Receive Date: 20150217
  Receipt Date: 20150217
  Transmission Date: 20150721
  Serious: Yes (Hospitalization)
  Sender: FDA-Public Use
  Company Number: PHHY2015KZ014604

PATIENT
  Age: 32 Year
  Sex: Male

DRUGS (7)
  1. CARBAMAZEPINE. [Suspect]
     Active Substance: CARBAMAZEPINE
     Indication: STATUS EPILEPTICUS
     Dosage: 200 MG, BID
     Route: 065
  2. THIOPENTAL SODIUM. [Suspect]
     Active Substance: THIOPENTAL SODIUM
     Dosage: 0.07 MG/KG/MIN
     Route: 065
  3. DIAZEPAM. [Suspect]
     Active Substance: DIAZEPAM
     Indication: STATUS EPILEPTICUS
     Dosage: 0.15 MG/KG (10 MG BOLUS)
     Route: 065
  4. PROPOFOL. [Suspect]
     Active Substance: PROPOFOL
     Indication: STATUS EPILEPTICUS
     Dosage: 0.027 MG/KG/MIN
     Route: 065
  5. THIOPENTAL SODIUM. [Suspect]
     Active Substance: THIOPENTAL SODIUM
     Indication: STATUS EPILEPTICUS
     Dosage: 0.04 MG/KG/MIN
     Route: 065
  6. PROPOFOL. [Suspect]
     Active Substance: PROPOFOL
     Dosage: 0.09 MG/KG/MIN
     Route: 065
  7. VALPROATE SODIUM. [Suspect]
     Active Substance: VALPROATE SODIUM
     Indication: STATUS EPILEPTICUS
     Dosage: 2 G, QD
     Route: 065

REACTIONS (8)
  - Blood lactate dehydrogenase increased [Recovering/Resolving]
  - Drug ineffective [Unknown]
  - Pyrexia [Recovering/Resolving]
  - Hepatic enzyme increased [Recovering/Resolving]
  - Hypotension [Recovered/Resolved]
  - Status epilepticus [Recovered/Resolved]
  - Liver injury [Recovering/Resolving]
  - Brain oedema [Recovering/Resolving]
